FAERS Safety Report 7073891-6 (Version None)
Quarter: 2010Q4

REPORT INFORMATION
  Report Type: 
  Country: None (occurrence: None)
  Receive Date: 20101029
  Receipt Date: 20101027
  Transmission Date: 20110411
  Serious: Yes (Death, Other)
  Sender: FDA-Public Use
  Company Number: ZA-PURDUE-GBR-2010-0007260

PATIENT
  Age: 26 Year
  Weight: 59 kg

DRUGS (2)
  1. MORPHINE SULFATE [Suspect]
     Indication: PAIN
     Dosage: 5 MG, SINGLE
     Route: 042
  2. MORPHINE SULFATE [Suspect]
     Dosage: 10 MG, SINGLE
     Route: 042

REACTIONS (4)
  - CARDIAC ARREST [None]
  - HYPOXIC-ISCHAEMIC ENCEPHALOPATHY [None]
  - OBSTRUCTIVE AIRWAYS DISORDER [None]
  - RESPIRATORY DEPRESSION [None]
